FAERS Safety Report 23078346 (Version 5)
Quarter: 2024Q4

REPORT INFORMATION
  Report Type: Spontaneous
  Country: US (occurrence: US)
  Receive Date: 20231018
  Receipt Date: 20241212
  Transmission Date: 20250115
  Serious: No
  Sender: LUPIN
  Company Number: US-LUPIN PHARMACEUTICALS INC.-2023-08963

PATIENT

DRUGS (2)
  1. ALBUTEROL SULFATE [Suspect]
     Active Substance: ALBUTEROL SULFATE
     Indication: Dyspnoea
     Dosage: UNK, PRN (1 PUFF AS NEEDED)
     Dates: start: 2023
  2. ALBUTEROL SULFATE [Suspect]
     Active Substance: ALBUTEROL SULFATE
     Indication: Wheezing
     Dosage: UNK, Q4H (, 2 PUFFS EVERY 4 H)
     Dates: start: 20240702

REACTIONS (6)
  - Dyspnoea [Unknown]
  - Anxiety [Unknown]
  - Drug dose omission by device [Unknown]
  - Device occlusion [Unknown]
  - Device delivery system issue [Unknown]
  - Wrong technique in product usage process [Unknown]
